FAERS Safety Report 20555050 (Version 2)
Quarter: 2022Q1

REPORT INFORMATION
  Report Type: Report from Study
  Country: FR (occurrence: None)
  Receive Date: 20220304
  Receipt Date: 20220309
  Transmission Date: 20220424
  Serious: Yes (Other)
  Sender: FDA-Public Use
  Company Number: FR-ROCHE-3038201

PATIENT
  Age: 64 Year
  Sex: Female
  Weight: 80 kg

DRUGS (16)
  1. ATEZOLIZUMAB [Suspect]
     Active Substance: ATEZOLIZUMAB
     Indication: Triple negative breast cancer
     Dosage: ON 20/JAN/2022, RECEIVED MOST RECENT DOSE 840 MG OF ATEZOLIZUMAB PRIOR TO ADVERSE EVENT (AE)
     Route: 041
     Dates: start: 20190807
  2. BEVACIZUMAB [Suspect]
     Active Substance: BEVACIZUMAB
     Indication: Triple negative breast cancer
     Route: 042
     Dates: start: 20190807
  3. SELICRELUMAB [Suspect]
     Active Substance: SELICRELUMAB
     Indication: Triple negative breast cancer
     Dosage: ON DAY 1 OF CYCLES 1 TO 4 AND EVERY THIRD CYCLE THEREAFTER
     Route: 058
     Dates: start: 20190807
  4. ESCITALOPRAM OXALATE [Concomitant]
     Active Substance: ESCITALOPRAM OXALATE
     Indication: Anxiety
     Route: 048
     Dates: start: 20190723
  5. ACETAMINOPHEN [Concomitant]
     Active Substance: ACETAMINOPHEN
     Route: 042
     Dates: start: 20190807
  6. POLARAMINE [Concomitant]
     Active Substance: DEXCHLORPHENIRAMINE MALEATE
     Route: 042
     Dates: start: 20190807
  7. DIPROSONE [Concomitant]
     Active Substance: BETAMETHASONE DIPROPIONATE
     Dates: start: 20190814
  8. HEXAQUINE [Concomitant]
     Active Substance: NIAOULI OIL\QUININE BENZOATE\THIAMINE HYDROCHLORIDE
     Indication: Muscle spasms
     Route: 048
     Dates: start: 20200828
  9. ECONAZOLE [Concomitant]
     Active Substance: ECONAZOLE
     Indication: Vulvovaginal candidiasis
     Dosage: OTHER
     Route: 067
     Dates: start: 20200818
  10. AMLODIPINE [Concomitant]
     Active Substance: AMLODIPINE BESYLATE
     Indication: Hypertension
     Route: 048
     Dates: start: 20201022
  11. BETAMETHASONE [Concomitant]
     Active Substance: BETAMETHASONE
     Indication: Pruritus
     Dosage: 1 OTHER
     Route: 061
     Dates: start: 20201120
  12. ATORVASTATIN [Concomitant]
     Active Substance: ATORVASTATIN
     Indication: Hypercholesterolaemia
     Route: 048
     Dates: start: 20210210
  13. FERROUS SULFATE ANHYDROUS [Concomitant]
     Active Substance: FERROUS SULFATE ANHYDROUS
     Indication: Iron deficiency
     Route: 048
     Dates: start: 20210311
  14. PERINDOPRIL [Concomitant]
     Active Substance: PERINDOPRIL
     Indication: Proteinuria
     Route: 048
     Dates: start: 20211112
  15. GLYCERIN\MINERAL OIL\PETROLATUM [Concomitant]
     Active Substance: GLYCERIN\MINERAL OIL\PETROLATUM
     Indication: Dermatosis
     Dosage: 1 OTHER
     Route: 061
     Dates: start: 20211126
  16. BISOPROLOL [Concomitant]
     Active Substance: BISOPROLOL
     Route: 048
     Dates: start: 20211112, end: 20220225

REACTIONS (1)
  - Transaminases increased [Not Recovered/Not Resolved]

NARRATIVE: CASE EVENT DATE: 20220224
